FAERS Safety Report 23560038 (Version 1)
Quarter: 2024Q1

REPORT INFORMATION
  Report Type: Spontaneous
  Country: US (occurrence: US)
  Receive Date: 20240223
  Receipt Date: 20240223
  Transmission Date: 20240410
  Serious: No
  Sender: FDA-Public Use
  Company Number: US-002147023-NVSC2024US038832

PATIENT
  Sex: Female

DRUGS (2)
  1. MEKINIST [Suspect]
     Active Substance: TRAMETINIB DIMETHYL SULFOXIDE
     Indication: Pancreatic disorder
     Dosage: 1 MG, QD
     Route: 048
     Dates: start: 202309
  2. TAFINLAR [Suspect]
     Active Substance: DABRAFENIB MESYLATE
     Indication: Pancreatic disorder
     Dosage: UNK (2 CAPSULES BY MOUTH IN THE MORNING AND 1 CAPSULE AT NIGHT)
     Route: 048
     Dates: start: 202309

REACTIONS (1)
  - Ocular hyperaemia [Unknown]
